FAERS Safety Report 23440142 (Version 2)
Quarter: 2024Q2

REPORT INFORMATION
  Report Type: Spontaneous
  Country: FR (occurrence: FR)
  Receive Date: 20240124
  Receipt Date: 20240410
  Transmission Date: 20240715
  Serious: No
  Sender: FDA-Public Use
  Company Number: FR-PFIZER INC-PV202400001907

PATIENT
  Age: 68 Year
  Sex: Female

DRUGS (4)
  1. DAPTOMYCIN [Suspect]
     Active Substance: DAPTOMYCIN
     Indication: Staphylococcal infection
     Dosage: UNK
  2. DAPTOMYCIN [Suspect]
     Active Substance: DAPTOMYCIN
     Indication: Osteomyelitis
  3. CEFTAROLINE FOSAMIL [Concomitant]
     Active Substance: CEFTAROLINE FOSAMIL
     Indication: Staphylococcal infection
     Dosage: UNK
  4. CEFTAROLINE FOSAMIL [Concomitant]
     Active Substance: CEFTAROLINE FOSAMIL
     Indication: Osteomyelitis

REACTIONS (1)
  - Product use in unapproved indication [Unknown]
